FAERS Safety Report 6581367-5 (Version None)
Quarter: 2010Q1

REPORT INFORMATION
  Report Type: 
  Country: None (occurrence: None)
  Receive Date: 20100215
  Receipt Date: 20100203
  Transmission Date: 20100710
  Serious: Yes (Other)
  Sender: FDA-Public Use
  Company Number: DE-JNJFOC-20091202111

PATIENT
  Sex: Female

DRUGS (9)
  1. TAVANIC [Suspect]
     Indication: DRUG USE FOR UNKNOWN INDICATION
     Route: 065
  2. OFLOXACIN [Suspect]
     Indication: BACTERIURIA
     Route: 065
  3. CEFPODOXIME PROXETIL [Suspect]
     Indication: DRUG USE FOR UNKNOWN INDICATION
     Route: 065
  4. CIPROFLOXACIN [Suspect]
     Indication: DRUG USE FOR UNKNOWN INDICATION
     Route: 065
  5. AVELOX [Suspect]
     Indication: DRUG USE FOR UNKNOWN INDICATION
     Route: 065
  6. URO-TARIVID [Suspect]
     Indication: DRUG USE FOR UNKNOWN INDICATION
     Route: 065
  7. UNSPECIFIED GYRASE INHIBITOR [Suspect]
     Indication: DRUG USE FOR UNKNOWN INDICATION
     Route: 065
  8. PREDNISOLONE SODIUM SUCCINATE INJ [Suspect]
     Indication: DRUG USE FOR UNKNOWN INDICATION
     Route: 065
  9. PREDNISOLONE SODIUM SUCCINATE INJ [Suspect]
     Route: 065

REACTIONS (13)
  - ASTHENIA [None]
  - BONE DISORDER [None]
  - DIZZINESS [None]
  - ERYTHEMA NODOSUM [None]
  - EUSTACHIAN TUBE OBSTRUCTION [None]
  - HEADACHE [None]
  - HICCUPS [None]
  - MUSCLE SPASMS [None]
  - MUSCULAR WEAKNESS [None]
  - MUSCULOSKELETAL PAIN [None]
  - PAIN IN EXTREMITY [None]
  - TENDON PAIN [None]
  - VISION BLURRED [None]
